FAERS Safety Report 25576525 (Version 3)
Quarter: 2025Q3

REPORT INFORMATION
  Report Type: Report from Study
  Country: CA (occurrence: CA)
  Receive Date: 20250718
  Receipt Date: 20250821
  Transmission Date: 20251021
  Serious: Yes (Other)
  Sender: ABBVIE
  Company Number: CA-ABBVIE-6374170

PATIENT
  Age: 66 Year
  Sex: Female

DRUGS (3)
  1. VENCLEXTA [Suspect]
     Active Substance: VENETOCLAX
     Indication: Acute myeloid leukaemia
     Dosage: FORM STRENGTH 100 MG,  400MG PO DAILY X 28 DAYS, LAST ADMIN DATE- 2025-06
     Route: 048
     Dates: start: 20250626
  2. ATORVASTATIN [Concomitant]
     Active Substance: ATORVASTATIN
     Indication: Product used for unknown indication
     Route: 050
  3. AZACITIDINE [Concomitant]
     Active Substance: AZACITIDINE
     Indication: Product used for unknown indication

REACTIONS (9)
  - Transfusion [Unknown]
  - Fatigue [Unknown]
  - Pyrexia [Unknown]
  - Infection [Unknown]
  - Platelet transfusion [Unknown]
  - Mental disorder [Unknown]
  - Inflammatory marker increased [Unknown]
  - Illness [Unknown]
  - Palliative care [Unknown]

NARRATIVE: CASE EVENT DATE: 20250101
